FAERS Safety Report 22382911 (Version 1)
Quarter: 2023Q2

REPORT INFORMATION
  Report Type: Report from Study
  Country: US (occurrence: US)
  Receive Date: 20230530
  Receipt Date: 20230530
  Transmission Date: 20230722
  Serious: Yes (Other)
  Sender: FDA-Public Use
  Company Number: US-MYLANLABS-2023M1055428

PATIENT
  Sex: Male
  Weight: 61.23 kg

DRUGS (1)
  1. YUPELRI [Suspect]
     Active Substance: REVEFENACIN
     Indication: Chronic obstructive pulmonary disease
     Dosage: 175 MICROGRAM, QD
     Route: 055
     Dates: start: 20230522, end: 20230522

REACTIONS (3)
  - Agitation [Recovering/Resolving]
  - Oxygen saturation decreased [Recovering/Resolving]
  - Therapy partial responder [Unknown]
